FAERS Safety Report 5874847-9 (Version None)
Quarter: 2008Q3

REPORT INFORMATION
  Report Type: 
  Country: None (occurrence: None)
  Receive Date: 20080904
  Receipt Date: 20080821
  Transmission Date: 20090109
  Serious: Yes (Life-Threatening, Hospitalization)
  Sender: FDA-Public Use
  Company Number: MPS1-1000091

PATIENT
  Age: 10 Year
  Sex: Female

DRUGS (4)
  1. ALDURAZYME [Suspect]
     Indication: MUCOPOLYSACCHARIDOSIS
     Dosage: 100 MCG/KG,
     Dates: start: 20050201
  2. FUROSEMIDE [Concomitant]
  3. CAPTOPRIL [Concomitant]
  4. RANITIDINE [Concomitant]

REACTIONS (6)
  - BLOOD CULTURE POSITIVE [None]
  - BRONCHOPNEUMONIA [None]
  - CATHETER BACTERAEMIA [None]
  - CYANOSIS [None]
  - KLEBSIELLA INFECTION [None]
  - POOR PERIPHERAL CIRCULATION [None]
